FAERS Safety Report 4493384-X (Version None)
Quarter: 2004Q4

REPORT INFORMATION
  Report Type: 
  Country: None (occurrence: None)
  Receive Date: 20041102
  Receipt Date: 20041025
  Transmission Date: 20050328
  Serious: Yes (Disabling)
  Sender: FDA-Public Use
  Company Number: HQWYE800221APR03

PATIENT
  Age: 42 Year
  Sex: Female

DRUGS (4)
  1. DIMETAPP [Suspect]
     Indication: SINUS DISORDER
     Dosage: 1 TABLET EVERY 12 HOURS, ORAL
     Route: 048
     Dates: start: 19970218, end: 19970219
  2. COUGH AND COLD PREPARATIONS (COUGH AND COLD PREPARATIONS, ) [Suspect]
     Indication: COUGH
     Dosage: 2 TEASPOONS EVERY 4 HOURS, ORAL
     Route: 048
     Dates: start: 19970218, end: 19970219
  3. COUGH AND COLD PREPARATIONS (COUGH AND COLD PREPARATIONS, ) [Suspect]
     Indication: SINUS DISORDER
     Dosage: 2 TEASPOONS EVERY 4 HOURS, ORAL
     Route: 048
     Dates: start: 19970218, end: 19970219
  4. ROBITUSSIN CF (GUAIFENESIN/DEXTROMETHORPHAN/PHENYLPROPANOLAMINE, SYRUP [Suspect]
     Dosage: ORAL
     Route: 048

REACTIONS (3)
  - ANEURYSM [None]
  - DEPRESSION [None]
  - HAEMORRHAGIC STROKE [None]
